FAERS Safety Report 9073191 (Version 1)
Quarter: 2013Q1

REPORT INFORMATION
  Report Type: Report from Study
  Country: US (occurrence: US)
  Receive Date: 20130128
  Receipt Date: 20130128
  Transmission Date: 20140127
  Serious: No
  Sender: FDA-Public Use
  Company Number: US-ABBOTT-12P-163-0890524-00

PATIENT
  Age: 55 Year
  Sex: Male

DRUGS (5)
  1. HUMIRA 40 MG/0.8 ML PEN [Suspect]
     Indication: PSORIASIS
     Dosage: LOADING DOSE
     Dates: start: 20111111, end: 20111111
  2. HUMIRA 40 MG/0.8 ML PEN [Suspect]
     Dates: end: 20120113
  3. MONOPRIL [Concomitant]
     Indication: HYPERTENSION
  4. PROCARDIA [Concomitant]
     Indication: HYPERTENSION
  5. SINGULAIR [Concomitant]
     Indication: SINUSITIS

REACTIONS (12)
  - Headache [Recovered/Resolved]
  - Fatigue [Not Recovered/Not Resolved]
  - Nasopharyngitis [Unknown]
  - Influenza [Unknown]
  - Laceration [Unknown]
  - Dry skin [Unknown]
  - Upper respiratory tract congestion [Not Recovered/Not Resolved]
  - Respiratory tract congestion [Not Recovered/Not Resolved]
  - Sinus disorder [Not Recovered/Not Resolved]
  - Oedema mucosal [Not Recovered/Not Resolved]
  - Rhinorrhoea [Not Recovered/Not Resolved]
  - Eye pruritus [Not Recovered/Not Resolved]
